FAERS Safety Report 6338860-X (Version None)
Quarter: 2009Q3

REPORT INFORMATION
  Report Type: 
  Country: None (occurrence: None)
  Receive Date: 20090903
  Receipt Date: 20090824
  Transmission Date: 20100115
  Serious: Yes (Hospitalization)
  Sender: FDA-Public Use
  Company Number: US-WYE-H10702109

PATIENT
  Sex: Female
  Weight: 112.59 kg

DRUGS (4)
  1. EFFEXOR XR [Suspect]
     Indication: DEPRESSION
     Route: 048
     Dates: start: 20040101
  2. NEXIUM [Concomitant]
     Dosage: UNKNOWN
  3. POTASSIUM CHLORIDE [Concomitant]
     Dosage: UNKNOWN
  4. WARFARIN SODIUM [Concomitant]
     Dosage: UNKNOWN

REACTIONS (9)
  - AMNESIA [None]
  - ASTHENIA [None]
  - CARDIAC ARREST [None]
  - CONVULSION [None]
  - DRUG WITHDRAWAL SYNDROME [None]
  - FATIGUE [None]
  - RESPIRATORY ARREST [None]
  - TREMOR [None]
  - UNEVALUABLE EVENT [None]
